FAERS Safety Report 4776177-5 (Version None)
Quarter: 2005Q3

REPORT INFORMATION
  Report Type: 
  Country: None (occurrence: None)
  Receive Date: 20050914
  Receipt Date: 20050217
  Transmission Date: 20060218
  Serious: Yes (Hospitalization)
  Sender: FDA-Public Use
  Company Number: 163-20785-05020333

PATIENT
  Age: 72 Year
  Sex: Male

DRUGS (1)
  1. THALOMID [Suspect]
     Indication: IDIOPATHIC PULMONARY FIBROSIS
     Dosage: 200-800MG, QD OR MTD, ORAL
     Route: 048
     Dates: start: 20041213

REACTIONS (3)
  - ASTHENIA [None]
  - BRONCHITIS ACUTE [None]
  - PYREXIA [None]
